FAERS Safety Report 8011445-5 (Version None)
Quarter: 2011Q4

REPORT INFORMATION
  Report Type: 
  Country: None (occurrence: None)
  Receive Date: 20111222
  Receipt Date: 20111208
  Transmission Date: 20120403
  Serious: Yes (Life-Threatening, Hospitalization)
  Sender: FDA-Public Use
  Company Number: EU-2011-10281

PATIENT
  Sex: Male

DRUGS (18)
  1. TAMSULOSIN HCL [Concomitant]
  2. ATORVASTATIN [Concomitant]
  3. CARVEDILOL [Concomitant]
  4. ASPIRIN [Concomitant]
  5. LORAZEPAM [Concomitant]
  6. CLOPIDOGREL [Concomitant]
  7. ACETAMINOPHEN [Concomitant]
  8. ESPIRONOLACTON (SPIRONOLACTONE) [Concomitant]
  9. HYDROCORTONE [Concomitant]
  10. OMEPRAZOLE [Concomitant]
  11. CITALOPRAM HYDROBROMIDE [Concomitant]
  12. RAMIPRIL [Concomitant]
  13. CIPROFLOXACIN [Concomitant]
  14. SAMSCA [Suspect]
     Indication: HYPONATRAEMIA
     Dosage: 15 MG MILLIGRAM(S), DAILY DOSE, ORAL
     Route: 048
     Dates: start: 20111127
  15. SAMSCA [Suspect]
     Indication: INAPPROPRIATE ANTIDIURETIC HORMONE SECRETION
     Dosage: 15 MG MILLIGRAM(S), DAILY DOSE, ORAL
     Route: 048
     Dates: start: 20111127
  16. WARFARIN SODIUM [Concomitant]
  17. TORSEMIDE [Concomitant]
  18. SULPIRIDE (SULPIRIDE) [Concomitant]

REACTIONS (15)
  - HAEMATEMESIS [None]
  - MALLORY-WEISS SYNDROME [None]
  - RESPIRATORY FAILURE [None]
  - URINARY TRACT INFECTION [None]
  - PYREXIA [None]
  - CARDIAC FAILURE ACUTE [None]
  - ABDOMINAL PAIN UPPER [None]
  - HEPATIC CONGESTION [None]
  - CYSTITIS [None]
  - LEUKOCYTOSIS [None]
  - PLEURAL EFFUSION [None]
  - ALKALOSIS HYPOKALAEMIC [None]
  - ASPIRATION [None]
  - HYPERBILIRUBINAEMIA [None]
  - VOMITING [None]
